FAERS Safety Report 17884225 (Version 1)
Quarter: 2020Q2

REPORT INFORMATION
  Report Type: Spontaneous
  Country: FR (occurrence: FR)
  Receive Date: 20200611
  Receipt Date: 20200611
  Transmission Date: 20200714
  Serious: Yes (Other)
  Sender: FDA-Public Use
  Company Number: FR-TEVA-2020-FR-1247188

PATIENT
  Age: 55 Year
  Sex: Male

DRUGS (1)
  1. OCTREOTIDE TEVA LP 20 MG [Suspect]
     Active Substance: OCTREOTIDE
     Dosage: POWDER AND SOLVENT FOR PROLONGED-RELEASE SUSPENSION FOR INJECTION
     Route: 065
     Dates: end: 202005

REACTIONS (7)
  - Monoplegia [Recovered/Resolved]
  - Drug hypersensitivity [Recovered/Resolved]
  - Erythema [Recovered/Resolved]
  - Pain in extremity [Recovered/Resolved]
  - Bed rest [Recovered/Resolved]
  - Musculoskeletal stiffness [Recovered/Resolved]
  - Product substitution issue [Unknown]

NARRATIVE: CASE EVENT DATE: 202004
